FAERS Safety Report 11910907 (Version 1)
Quarter: 2016Q1

REPORT INFORMATION
  Report Type: Spontaneous
  Country: US (occurrence: None)
  Receive Date: 20160111
  Receipt Date: 20160111
  Transmission Date: 20160526
  Serious: Yes (Disabling)
  Sender: FDA-Public Use
  Company Number: None

PATIENT
  Age: 43 Year
  Sex: Male

DRUGS (7)
  1. NORCO [Concomitant]
     Active Substance: ACETAMINOPHEN\HYDROCODONE BITARTRATE
  2. BUTRANS [Concomitant]
     Active Substance: BUPRENORPHINE
  3. SENOKOT-S [Concomitant]
     Active Substance: DOCUSATE SODIUM\SENNOSIDES
  4. LUNESTA [Concomitant]
     Active Substance: ESZOPICLONE
  5. GABAPENTIN 600 MG GLENMARK GENERICS [Suspect]
     Active Substance: GABAPENTIN
     Indication: NEURALGIA
     Route: 048
     Dates: start: 20150815, end: 20151001
  6. CLARITIN [Concomitant]
     Active Substance: LORATADINE
  7. ESOMEPRAZOLE [Concomitant]
     Active Substance: ESOMEPRAZOLE

REACTIONS (5)
  - Product formulation issue [None]
  - Pain [None]
  - Product substitution issue [None]
  - Hypoaesthesia [None]
  - Product quality issue [None]

NARRATIVE: CASE EVENT DATE: 20150815
